FAERS Safety Report 9201146 (Version 1)
Quarter: 2013Q2

REPORT INFORMATION
  Report Type: Spontaneous
  Country: US (occurrence: US)
  Receive Date: 20130401
  Receipt Date: 20130401
  Transmission Date: 20140414
  Serious: No
  Sender: FDA-Public Use
  Company Number: US-PFIZER INC-2013101078

PATIENT
  Age: 52 Year
  Sex: 0

DRUGS (3)
  1. LYRICA [Suspect]
     Dosage: 75 MG ONE TABLET, 2X/DAY
  2. METHADOSE [Concomitant]
     Dosage: UNK
  3. SYNTHROID [Concomitant]
     Dosage: UNK

REACTIONS (2)
  - Memory impairment [Unknown]
  - Pain [Unknown]
